FAERS Safety Report 5755672-6 (Version None)
Quarter: 2008Q2

REPORT INFORMATION
  Report Type: 
  Country: None (occurrence: None)
  Receive Date: 20080530
  Receipt Date: 20080530
  Transmission Date: 20081010
  Serious: Yes (Other)
  Sender: FDA-Public Use
  Company Number: None

PATIENT
  Age: 62 Year
  Sex: Male
  Weight: 89.7 kg

DRUGS (1)
  1. MOXIFLOXACIN HCL [Suspect]
     Indication: ANTIBIOTIC THERAPY
     Dosage: 400 MG ONCE IV
     Route: 042
     Dates: start: 20071004, end: 20071004

REACTIONS (3)
  - HYPERSENSITIVITY [None]
  - INFUSION SITE IRRITATION [None]
  - INFUSION SITE RASH [None]
